FAERS Safety Report 12584390 (Version 2)
Quarter: 2016Q3

REPORT INFORMATION
  Report Type: Spontaneous
  Country: FR (occurrence: FR)
  Receive Date: 20160722
  Receipt Date: 20160906
  Transmission Date: 20161109
  Serious: Yes (Other)
  Sender: FDA-Public Use
  Company Number: FR-ALLERGAN-1654981US

PATIENT
  Age: 60 Year
  Sex: Female
  Weight: 58 kg

DRUGS (5)
  1. VISTABEL [Suspect]
     Active Substance: BOTULINUM TOXIN TYPE A
     Indication: SKIN WRINKLING
     Dosage: 12 UNITS, SINGLE
     Route: 030
     Dates: start: 20150924, end: 20150924
  2. VISTABEL [Suspect]
     Active Substance: BOTULINUM TOXIN TYPE A
     Indication: SKIN WRINKLING
     Dosage: 18 UNITS, SINGLE
     Route: 030
     Dates: start: 20150924, end: 20150924
  3. VISTABEL [Suspect]
     Active Substance: BOTULINUM TOXIN TYPE A
     Dosage: 8 UNITS, SINGLE
     Route: 030
     Dates: start: 20150924, end: 20150924
  4. VISTABEL [Suspect]
     Active Substance: BOTULINUM TOXIN TYPE A
     Indication: SKIN WRINKLING
     Dosage: 12 UNITS, SINGLE
     Route: 030
     Dates: start: 20150924, end: 20150924
  5. ARNICA [Concomitant]
     Active Substance: ARNICA MONTANA FLOWER
     Indication: PRODUCT USED FOR UNKNOWN INDICATION
     Dosage: 3 GRANULES QD FOR 3 DAYS BEFORE INJECTION OF VISTABEL
     Route: 048
     Dates: start: 20150921, end: 20150923

REACTIONS (2)
  - Cyst [Unknown]
  - Granuloma skin [Unknown]

NARRATIVE: CASE EVENT DATE: 20160421
